FAERS Safety Report 12843411 (Version 1)
Quarter: 2016Q4

REPORT INFORMATION
  Report Type: Spontaneous
  Country: US (occurrence: US)
  Receive Date: 20161013
  Receipt Date: 20161013
  Transmission Date: 20170207
  Serious: Yes (Other)
  Sender: FDA-Public Use
  Company Number: None

PATIENT
  Age: 37 Year
  Sex: Female
  Weight: 107.05 kg

DRUGS (10)
  1. HUMALOG [Concomitant]
     Active Substance: INSULIN LISPRO
  2. PROVIGIL [Concomitant]
     Active Substance: MODAFINIL
  3. CYMBALTA [Concomitant]
     Active Substance: DULOXETINE HYDROCHLORIDE
  4. LASIX [Concomitant]
     Active Substance: FUROSEMIDE
  5. POTASSIUM [Concomitant]
     Active Substance: POTASSIUM
  6. KEPPRA [Concomitant]
     Active Substance: LEVETIRACETAM
  7. EDARBYCHLOR [Concomitant]
     Active Substance: AZILSARTAN KAMEDOXOMIL\CHLORTHALIDONE
  8. HYOSCYAMINE 0.125MG [Suspect]
     Active Substance: HYOSCYAMINE
     Indication: IMPAIRED GASTRIC EMPTYING
     Route: 048
     Dates: start: 20160811
  9. BIPAP [Concomitant]
     Active Substance: DEVICE
  10. SUCRALFATE. [Concomitant]
     Active Substance: SUCRALFATE

REACTIONS (7)
  - Agitation [None]
  - Gait disturbance [None]
  - Loss of consciousness [None]
  - Dizziness [None]
  - Feeling hot [None]
  - Confusional state [None]
  - Seizure [None]

NARRATIVE: CASE EVENT DATE: 20160814
